FAERS Safety Report 20993867 (Version 2)
Quarter: 2022Q3

REPORT INFORMATION
  Report Type: Report from Study
  Country: CA (occurrence: CA)
  Receive Date: 20220622
  Receipt Date: 20220804
  Transmission Date: 20221027
  Serious: Yes (Hospitalization, Other)
  Sender: FDA-Public Use
  Company Number: CA-BRISTOL-MYERS SQUIBB COMPANY-2022-056338

PATIENT
  Age: 76 Year
  Sex: Female

DRUGS (1)
  1. REBLOZYL [Suspect]
     Active Substance: LUSPATERCEPT-AAMT
     Indication: Myelodysplastic syndrome
     Dosage: FREQUENCY: 1/3 WEEKS, ROUTE: INJECTION
     Route: 050
     Dates: start: 20211202

REACTIONS (3)
  - Fall [Unknown]
  - Hip fracture [Recovering/Resolving]
  - Thrombosis [Recovering/Resolving]
